FAERS Safety Report 9013894 (Version 2)
Quarter: 2013Q2

REPORT INFORMATION
  Report Type: Spontaneous
  Country: US (occurrence: None)
  Receive Date: 20120518
  Receipt Date: 20121120
  Transmission Date: 20140414
  Serious: Yes (Other)
  Sender: FDA-Public Use
  Company Number: 1000029727

PATIENT
  Age: 57 Year
  Sex: Female

DRUGS (5)
  1. VIIBRYD [Suspect]
     Indication: DEPRESSION
     Route: 048
     Dates: start: 2012, end: 2012
  2. LIPITOR (ATORVASTATIN CALCIUM) [Concomitant]
  3. SYNTHROID (LEVOTHYROXINE SODIUM) [Concomitant]
  4. ARTHRITIS MEDICATION (NOS) (ARTHRITIS MEDICATION) (NOS) [Concomitant]
  5. ESTRATEST (ESTRATEST HS) [Concomitant]

REACTIONS (4)
  - Diarrhoea [None]
  - Weight decreased [None]
  - Bruxism [None]
  - Headache [None]
